FAERS Safety Report 8007962-4 (Version None)
Quarter: 2011Q4

REPORT INFORMATION
  Report Type: 
  Country: None (occurrence: None)
  Receive Date: 20111227
  Receipt Date: 20111212
  Transmission Date: 20120403
  Serious: Yes (Other)
  Sender: FDA-Public Use
  Company Number: PHFR2011IE06026

PATIENT
  Sex: Male

DRUGS (6)
  1. CLONAZEPAM [Concomitant]
     Dosage: 0.25 MG, DAILY
     Route: 048
  2. AMITRIPTYLINE [Concomitant]
     Dosage: 75 MG, DAILY
     Route: 048
  3. CLOZARIL [Suspect]
     Indication: SCHIZOPHRENIA
     Route: 048
     Dates: start: 20090917
  4. CLONAZEPAM [Concomitant]
     Dosage: 0.25 MG, DAILY
     Route: 048
  5. TROSPIUM CHLORIDE [Concomitant]
     Dosage: 20 MG, DAILY
     Route: 048
  6. AMITRIPTYLINE [Concomitant]
     Dosage: 75 MG, DAILY
     Route: 048

REACTIONS (3)
  - BLOOD CREATINE PHOSPHOKINASE INCREASED [None]
  - CONVULSION [None]
  - FALL [None]
